FAERS Safety Report 22080523 (Version 1)
Quarter: 2023Q1

REPORT INFORMATION
  Report Type: Spontaneous
  Country: US (occurrence: None)
  Receive Date: 20230309
  Receipt Date: 20230309
  Transmission Date: 20230418
  Serious: Yes (Disabling, Other)
  Sender: FDA-Public Use
  Company Number: None

PATIENT
  Age: 65 Year
  Sex: Female
  Weight: 62.1 kg

DRUGS (5)
  1. RISPERDAL [Suspect]
     Active Substance: RISPERIDONE
     Indication: Depression
     Dates: start: 19910910, end: 20140620
  2. RISPERDAL [Suspect]
     Active Substance: RISPERIDONE
     Indication: Anxiety
  3. PAXIL CR [Suspect]
     Active Substance: PAROXETINE HYDROCHLORIDE
  4. LAMICTAL [Suspect]
     Active Substance: LAMOTRIGINE
  5. LOSARTAN [Concomitant]
     Active Substance: LOSARTAN

REACTIONS (12)
  - Vertigo [None]
  - Vomiting [None]
  - Muscle twitching [None]
  - Tremor [None]
  - Headache [None]
  - Anxiety [None]
  - Decreased activity [None]
  - Akathisia [None]
  - Electric shock sensation [None]
  - Sexual dysfunction [None]
  - Withdrawal syndrome [None]
  - Impaired work ability [None]

NARRATIVE: CASE EVENT DATE: 20230208
